FAERS Safety Report 12569474 (Version 1)
Quarter: 2016Q3

REPORT INFORMATION
  Report Type: Spontaneous
  Country: GB (occurrence: GB)
  Receive Date: 20160719
  Receipt Date: 20160719
  Transmission Date: 20161109
  Serious: Yes (Other)
  Sender: FDA-Public Use
  Company Number: GB-TEVA-676405ACC

PATIENT
  Age: 82 Year
  Sex: Male
  Weight: 58 kg

DRUGS (7)
  1. ATORVASTATIN [Concomitant]
     Active Substance: ATORVASTATIN
     Indication: BLOOD CHOLESTEROL INCREASED
     Dosage: 1 DOSAGE FORMS DAILY; AT NIGHT.
     Dates: start: 20160628
  2. FUSIDIC ACID [Concomitant]
     Active Substance: FUSIDIC ACID
     Dosage: APPLY SMALL VOLUME TO AFFECTED SITES TWICE A DAY
     Dates: start: 20160505, end: 20160506
  3. DORZOLAMIDE HYDROCHLORIDE. [Concomitant]
     Active Substance: DORZOLAMIDE HYDROCHLORIDE
     Dosage: 2 GTT DAILY;
     Dates: start: 20141201
  4. SIMVASTATIN. [Suspect]
     Active Substance: SIMVASTATIN
     Dates: start: 20141201
  5. DERMOL [Concomitant]
     Active Substance: BENZALKONIUM CHLORIDE\CHLORHEXIDINE HYDROCHLORIDE\ISOPROPYL MYRISTATE\PARAFFIN
     Dosage: 2 DOSAGE FORMS DAILY; ON AFFECTED AREAS
     Dates: start: 20160602
  6. NASEPTIN [Concomitant]
     Active Substance: CHLORHEXIDINE HYDROCHLORIDE\NEOMYCIN SULFATE
     Dosage: 8 DOSAGE FORMS DAILY; APPLY INSIDE BOTH NOSTRILS
     Dates: start: 20160628
  7. TAMSULOSIN HYDROCHLORIDE. [Concomitant]
     Active Substance: TAMSULOSIN HYDROCHLORIDE
     Dosage: 1 DOSAGE FORMS DAILY;
     Dates: start: 20150511

REACTIONS (3)
  - Abnormal dreams [Unknown]
  - Pain in extremity [Unknown]
  - Myalgia [Unknown]

NARRATIVE: CASE EVENT DATE: 20160628
